FAERS Safety Report 10364709 (Version 1)
Quarter: 2014Q3

REPORT INFORMATION
  Report Type: Spontaneous
  Country: US (occurrence: US)
  Receive Date: 20140806
  Receipt Date: 20140806
  Transmission Date: 20150326
  Serious: No
  Sender: FDA-Public Use
  Company Number: US-BAYER-2014-117298

PATIENT
  Age: 51 Year
  Sex: Female
  Weight: 74.38 kg

DRUGS (2)
  1. SYNTHROID [Concomitant]
     Active Substance: LEVOTHYROXINE SODIUM
  2. ALEVE [Suspect]
     Active Substance: NAPROXEN SODIUM
     Indication: BACK PAIN
     Dosage: 2 DF, UNK
     Route: 048
     Dates: start: 20140527, end: 20140528

REACTIONS (4)
  - Flushing [Recovered/Resolved]
  - Fluid retention [Recovered/Resolved]
  - Incorrect dose administered [None]
  - Swelling [Recovered/Resolved]

NARRATIVE: CASE EVENT DATE: 20140527
